FAERS Safety Report 15125717 (Version 1)
Quarter: 2018Q3

REPORT INFORMATION
  Report Type: Spontaneous
  Country: US (occurrence: US)
  Receive Date: 20180710
  Receipt Date: 20180710
  Transmission Date: 20181010
  Serious: Yes (Hospitalization)
  Sender: FDA-Public Use
  Company Number: US-PFIZER INC-2018274280

PATIENT
  Age: 46 Year
  Sex: Male
  Weight: 122.45 kg

DRUGS (1)
  1. XANAX [Suspect]
     Active Substance: ALPRAZOLAM
     Indication: STRESS
     Dosage: 2 MG, UNK
     Dates: start: 1974

REACTIONS (4)
  - Drug ineffective [Unknown]
  - Generalised tonic-clonic seizure [Unknown]
  - Insomnia [Unknown]
  - Pneumonia [Unknown]

NARRATIVE: CASE EVENT DATE: 2002
